FAERS Safety Report 5059388-3 (Version None)
Quarter: 2006Q3

REPORT INFORMATION
  Report Type: 
  Country: None (occurrence: None)
  Receive Date: 20060724
  Receipt Date: 20050510
  Transmission Date: 20061208
  Serious: No
  Sender: FDA-Public Use
  Company Number: US-AMGEN-US134006

PATIENT

DRUGS (2)
  1. EPOGEN [Suspect]
     Indication: RENAL FAILURE CHRONIC
  2. MEDICINALPRODUCT NOT SPECIFIED BY SENDER [Concomitant]

REACTIONS (2)
  - THERAPEUTIC RESPONSE DECREASED [None]
  - TRANSPLANT REJECTION [None]
